FAERS Safety Report 16421318 (Version 1)
Quarter: 2019Q2

REPORT INFORMATION
  Report Type: Report from Study
  Country: US (occurrence: US)
  Receive Date: 20190612
  Receipt Date: 20190612
  Transmission Date: 20190711
  Serious: Yes (Hospitalization, Other)
  Sender: FDA-Public Use
  Company Number: US-BAYER-2019-111561

PATIENT
  Age: 78 Year
  Sex: Male

DRUGS (2)
  1. NEXAVAR [Suspect]
     Active Substance: SORAFENIB
     Indication: HEPATOCELLULAR CARCINOMA
     Dosage: 200 MG TWICE DAILY
     Route: 048
     Dates: start: 201905, end: 20190519
  2. NEXAVAR [Suspect]
     Active Substance: SORAFENIB
     Indication: HEPATOCELLULAR CARCINOMA
     Dosage: 400 MG, BID (TWICE DAILY)
     Route: 048

REACTIONS (7)
  - Abdominal pain upper [None]
  - Renal disorder [Unknown]
  - Gastric disorder [Unknown]
  - Musculoskeletal chest pain [None]
  - Hepatic enzyme abnormal [None]
  - Abdominal cavity drainage [None]
  - Dyspnoea [None]
